FAERS Safety Report 4642500-5 (Version None)
Quarter: 2005Q2

REPORT INFORMATION
  Report Type: 
  Country: None (occurrence: None)
  Receive Date: 20050420
  Receipt Date: 20050420
  Transmission Date: 20051028
  Serious: Yes (Death, Life-Threatening, Hospitalization)
  Sender: FDA-Public Use
  Company Number: None

PATIENT
  Sex: Male
  Weight: 68.9467 kg

DRUGS (4)
  1. SEROQUEL [Suspect]
     Indication: MAJOR DEPRESSION
     Dosage: 25 MG  1 OR 2 DAILY ORAL
     Route: 048
     Dates: start: 20050412, end: 20050412
  2. PREDNISONE [Concomitant]
  3. XANAX [Concomitant]
  4. ALBUTEROL [Concomitant]

REACTIONS (1)
  - NEUROLEPTIC MALIGNANT SYNDROME [None]
